FAERS Safety Report 8142069-7 (Version None)
Quarter: 2012Q1

REPORT INFORMATION
  Report Type: 
  Country: None (occurrence: None)
  Receive Date: 20120216
  Receipt Date: 20120201
  Transmission Date: 20120608
  Serious: Yes (Other)
  Sender: FDA-Public Use
  Company Number: US-WATSON-2012-00285

PATIENT
  Sex: Female
  Weight: 63 kg

DRUGS (2)
  1. FENTANYL CITRATE [Suspect]
     Indication: PAIN
     Dosage: UNK
     Route: 062
     Dates: start: 20100101, end: 20110701
  2. FENTANYL-100 [Suspect]
     Indication: PAIN
     Dosage: ONE PATCH Q 48 HOURS
     Route: 062
     Dates: start: 20110701, end: 20111201

REACTIONS (9)
  - TREMOR [None]
  - LOSS OF CONSCIOUSNESS [None]
  - DIARRHOEA [None]
  - HYPERHIDROSIS [None]
  - DRUG INEFFECTIVE [None]
  - NAUSEA [None]
  - ASTHENIA [None]
  - MALAISE [None]
  - DRUG WITHDRAWAL SYNDROME [None]
